FAERS Safety Report 8795952 (Version 1)
Quarter: 2012Q4

REPORT INFORMATION
  Report Type: Report from Study
  Country: US (occurrence: US)
  Receive Date: 20120919
  Receipt Date: 20120919
  Transmission Date: 20130627
  Serious: Yes (Hospitalization)
  Sender: FDA-Public Use
  Company Number: US-AMGEN-USACT2012059088

PATIENT
  Age: 71 Year
  Sex: Female
  Weight: 88 kg

DRUGS (7)
  1. PANITUMUMAB [Suspect]
     Indication: NON-SMALL CELL LUNG CANCER
     Dosage: UNK UNK, qwk
     Dates: start: 20120206
  2. TAXOL [Concomitant]
     Indication: NON-SMALL CELL LUNG CANCER
  3. CARBOPLATIN [Concomitant]
     Indication: NON-SMALL CELL LUNG CANCER
     Dosage: UNK UNK, qwk
  4. OXYGEN [Concomitant]
  5. LOVENOX [Concomitant]
     Indication: DEEP VEIN THROMBOSIS
     Dosage: 80 mg, bid
  6. LOVENOX [Concomitant]
     Indication: PULMONARY EMBOLISM
  7. PREDNISONE [Concomitant]

REACTIONS (2)
  - Pneumonitis [Recovered/Resolved with Sequelae]
  - Embolism [Recovered/Resolved with Sequelae]
